FAERS Safety Report 9934764 (Version 2)
Quarter: 2014Q2

REPORT INFORMATION
  Report Type: Spontaneous
  Country: US (occurrence: US)
  Receive Date: 20140228
  Receipt Date: 20140516
  Transmission Date: 20141212
  Serious: Yes (Death, Hospitalization)
  Sender: FDA-Public Use
  Company Number: US-GLAXOSMITHKLINE-A1031480A

PATIENT
  Age: 51 Year
  Sex: Male

DRUGS (2)
  1. AVANDIA [Suspect]
     Indication: DIABETES MELLITUS
     Dosage: 4MG PER DAY
     Route: 048
     Dates: start: 20030611
  2. ROSIGLITAZONE MALEATE [Suspect]
     Indication: DIABETES MELLITUS
     Dosage: 4MG PER DAY
     Route: 048
     Dates: start: 20030618, end: 20041122

REACTIONS (11)
  - Chronic respiratory failure [Fatal]
  - Amputation [Unknown]
  - Cardiac failure [Unknown]
  - Myocardial infarction [Unknown]
  - Pericarditis [Unknown]
  - Renal failure [Unknown]
  - Visual impairment [Unknown]
  - Coronary artery disease [Unknown]
  - Cardiac disorder [Unknown]
  - Pleural effusion [Unknown]
  - Renal disorder [Unknown]
